FAERS Safety Report 4662315-1 (Version None)
Quarter: 2005Q2

REPORT INFORMATION
  Report Type: 
  Country: None (occurrence: None)
  Receive Date: 20050513
  Receipt Date: 20050429
  Transmission Date: 20051028
  Serious: Yes (Other)
  Sender: FDA-Public Use
  Company Number: 2005068777

PATIENT
  Age: 41 Year
  Sex: Female

DRUGS (3)
  1. LYRICA [Suspect]
     Indication: ANXIETY DISORDER
     Dosage: 50 MG (25 MG, 2 IN 1 D), ORAL
     Route: 048
     Dates: start: 20050407, end: 20050411
  2. MOCLOBEMIDE (MOCLOBEMIDE) [Suspect]
     Indication: ANXIETY DISORDER
     Dosage: 750 MG (750 MG, 1 IN 1 D), ORAL
     Route: 048
     Dates: start: 19940328
  3. CLONAZEPAM [Concomitant]

REACTIONS (4)
  - ANXIETY [None]
  - CONDITION AGGRAVATED [None]
  - DRUG INTERACTION [None]
  - PANIC REACTION [None]
